FAERS Safety Report 6709721-9 (Version None)
Quarter: 2010Q2

REPORT INFORMATION
  Report Type: 
  Country: None (occurrence: None)
  Receive Date: 20100504
  Receipt Date: 20100419
  Transmission Date: 20101027
  Serious: Yes (Hospitalization)
  Sender: FDA-Public Use
  Company Number: BR-ROCHE-698201

PATIENT
  Sex: Male

DRUGS (3)
  1. MYCOPHENOLATE MOFETIL [Suspect]
     Route: 065
     Dates: start: 20071005
  2. BELATACEPT [Suspect]
     Route: 042
     Dates: start: 20061101, end: 20100218
  3. PREDNISONE TAB [Suspect]
     Route: 065
     Dates: start: 20080808

REACTIONS (2)
  - TRAUMATIC FRACTURE [None]
  - WOUND INFECTION [None]
